APPROVED DRUG PRODUCT: ARIPIPRAZOLE
Active Ingredient: ARIPIPRAZOLE
Strength: 10MG
Dosage Form/Route: TABLET;ORAL
Application: A202101 | Product #003 | TE Code: AB
Applicant: ALEMBIC PHARMACEUTICALS LTD
Approved: Apr 28, 2015 | RLD: No | RS: No | Type: RX